FAERS Safety Report 9182883 (Version 1)
Quarter: 2013Q1

REPORT INFORMATION
  Report Type: Spontaneous
  Country: US (occurrence: US)
  Receive Date: 20130322
  Receipt Date: 20130322
  Transmission Date: 20140127
  Serious: No
  Sender: FDA-Public Use
  Company Number: US-BRISTOL-MYERS SQUIBB COMPANY-16410771

PATIENT
  Age: 52 Year
  Sex: Male

DRUGS (5)
  1. ERBITUX [Suspect]
     Indication: COLON CANCER
     Dosage: LAST DOSE A WEEK AGO?750MG FOR 1 CYCLE, DOSE RED TO 450MG/M2-18JAN12?450MG-25JAN12,1,8,15FEB12
     Route: 042
     Dates: start: 20120111, end: 20120215
  2. ERBITUX [Suspect]
     Indication: HEAD AND NECK CANCER
     Dosage: LAST DOSE A WEEK AGO?750MG FOR 1 CYCLE, DOSE RED TO 450MG/M2-18JAN12?450MG-25JAN12,1,8,15FEB12
     Route: 042
     Dates: start: 20120111, end: 20120215
  3. BENADRYL [Concomitant]
     Route: 042
  4. DECADRON [Concomitant]
     Route: 042
  5. NORMAL SALINE [Concomitant]
     Route: 042

REACTIONS (5)
  - Rash [Recovering/Resolving]
  - Skin fissures [Unknown]
  - Fatigue [Unknown]
  - Pruritus generalised [Unknown]
  - Eye discharge [Unknown]
